FAERS Safety Report 9166011 (Version 1)
Quarter: 2013Q1

REPORT INFORMATION
  Report Type: Spontaneous
  Country: FR (occurrence: FR)
  Receive Date: 20130315
  Receipt Date: 20130315
  Transmission Date: 20140127
  Serious: Yes (Hospitalization)
  Sender: FDA-Public Use
  Company Number: FR-GLAXOSMITHKLINE-B0872479A

PATIENT
  Age: 56 Year
  Sex: Male

DRUGS (6)
  1. ZELITREX [Suspect]
     Indication: PROPHYLAXIS
     Dosage: 500MG TWICE PER DAY
     Route: 048
     Dates: start: 20130129
  2. ZOPHREN [Suspect]
     Indication: PRODUCT USED FOR UNKNOWN INDICATION
     Dosage: 16MG PER DAY
     Route: 042
     Dates: start: 20130129, end: 20130129
  3. MELPHALAN [Suspect]
     Indication: PLASMA CELL MYELOMA
     Dosage: 200MGM2 SINGLE DOSE
     Route: 042
     Dates: start: 20130129, end: 20130129
  4. STILNOX [Suspect]
     Indication: PRODUCT USED FOR UNKNOWN INDICATION
     Dosage: 10MG PER DAY
     Route: 048
  5. FUNGIZONE [Concomitant]
     Indication: ORAL FUNGAL INFECTION
     Dosage: 50MG THREE TIMES PER DAY
     Route: 048
  6. INEXIUM [Concomitant]
     Dosage: 40MG PER DAY
     Route: 042

REACTIONS (8)
  - Epilepsy [Recovered/Resolved]
  - Confusional state [Recovered/Resolved]
  - Anterograde amnesia [Recovered/Resolved]
  - Loss of consciousness [Recovered/Resolved]
  - Fall [Recovered/Resolved]
  - Motor dysfunction [Recovered/Resolved]
  - Tongue biting [Recovered/Resolved]
  - Urinary incontinence [Recovered/Resolved]
